FAERS Safety Report 9060680 (Version 1)
Quarter: 2013Q1

REPORT INFORMATION
  Report Type: Spontaneous
  Country: US (occurrence: US)
  Receive Date: 20130204
  Receipt Date: 20130204
  Transmission Date: 20140127
  Serious: No
  Sender: FDA-Public Use
  Company Number: US-ASTRAZENECA-2013SE06768

PATIENT
  Age: 40 Year
  Sex: Male
  Weight: 97.5 kg

DRUGS (4)
  1. SEROQUEL XR [Suspect]
     Indication: HEAD INJURY
     Route: 048
     Dates: start: 201211
  2. GEODON [Suspect]
     Route: 065
  3. TEGRETOL [Concomitant]
     Indication: HEAD INJURY
     Route: 048
     Dates: start: 201211
  4. LITHIUM [Concomitant]
     Indication: HEAD INJURY
     Route: 048
     Dates: start: 201211

REACTIONS (18)
  - Abdominal discomfort [Not Recovered/Not Resolved]
  - Abdominal discomfort [Not Recovered/Not Resolved]
  - Abdominal pain upper [Not Recovered/Not Resolved]
  - Diarrhoea [Not Recovered/Not Resolved]
  - Diplopia [Unknown]
  - Dysgeusia [Not Recovered/Not Resolved]
  - Headache [Unknown]
  - Headache [Unknown]
  - Migraine [Unknown]
  - Panic attack [Unknown]
  - Post-traumatic stress disorder [Unknown]
  - Adverse drug reaction [Unknown]
  - Tongue dry [Not Recovered/Not Resolved]
  - Constipation [Not Recovered/Not Resolved]
  - Dyspepsia [Not Recovered/Not Resolved]
  - Nightmare [Unknown]
  - Sluggishness [Not Recovered/Not Resolved]
  - Drug ineffective [Not Recovered/Not Resolved]
